FAERS Safety Report 7465533-2 (Version None)
Quarter: 2011Q2

REPORT INFORMATION
  Report Type: 
  Country: None (occurrence: None)
  Receive Date: 20110509
  Receipt Date: 20110430
  Transmission Date: 20111010
  Serious: Yes (Hospitalization)
  Sender: FDA-Public Use
  Company Number: CO-ROCHE-774153

PATIENT
  Sex: Male

DRUGS (2)
  1. MIRCERA [Suspect]
     Route: 058
     Dates: start: 20091023
  2. PREDNISOLONE [Concomitant]
     Indication: INFLAMMATION
     Dosage: FORM AND FREQUENCY UNKNOWN
     Route: 048

REACTIONS (1)
  - PANCREATITIS [None]
